FAERS Safety Report 20063090 (Version 1)
Quarter: 2021Q4

REPORT INFORMATION
  Report Type: Spontaneous
  Country: GB (occurrence: GB)
  Receive Date: 20211112
  Receipt Date: 20211112
  Transmission Date: 20220304
  Serious: Yes (Other)
  Sender: FDA-Public Use
  Company Number: None

PATIENT
  Age: 31 Year
  Sex: Female

DRUGS (4)
  1. PROPRANOLOL [Suspect]
     Active Substance: PROPRANOLOL HYDROCHLORIDE
     Indication: Ill-defined disorder
     Dosage: 10MG FOR THE FIRST 4 WEEKS, THEN 40MG FOR 1 WEEK, AND 20MG FOR THE LAST WEEK WEEK
     Route: 048
     Dates: start: 20210205, end: 20210321
  2. PROPRANOLOL [Suspect]
     Active Substance: PROPRANOLOL HYDROCHLORIDE
     Indication: Migraine prophylaxis
  3. AMITRIPTYLINE [Concomitant]
     Active Substance: AMITRIPTYLINE
     Indication: Ill-defined disorder
  4. SUMATRIPTAN [Concomitant]
     Active Substance: SUMATRIPTAN
     Indication: Ill-defined disorder

REACTIONS (5)
  - Fatigue [Recovered/Resolved]
  - Depressed level of consciousness [Unknown]
  - Amnesia [Unknown]
  - Nausea [Unknown]
  - Headache [Unknown]
